FAERS Safety Report 9259248 (Version 1)
Quarter: 2013Q2

REPORT INFORMATION
  Report Type: Report from Study
  Country: US (occurrence: US)
  Receive Date: 20130426
  Receipt Date: 20130426
  Transmission Date: 20140414
  Serious: Yes (Other)
  Sender: FDA-Public Use
  Company Number: US-ABBOTT-13P-163-1079080-00

PATIENT
  Sex: Female

DRUGS (1)
  1. CREON [Suspect]
     Indication: CYSTIC FIBROSIS
     Dosage: 12, DOSE: UNKNOWN
     Dates: start: 201105

REACTIONS (1)
  - Intestinal obstruction [Recovered/Resolved]
